FAERS Safety Report 24841647 (Version 2)
Quarter: 2025Q3

REPORT INFORMATION
  Report Type: Spontaneous
  Country: IN (occurrence: IN)
  Receive Date: 20250114
  Receipt Date: 20250915
  Transmission Date: 20251020
  Serious: Yes (Other)
  Sender: PFIZER
  Company Number: IN-PFIZER INC-PV202400088971

PATIENT
  Age: 65 Year
  Sex: Male

DRUGS (3)
  1. LORLATINIB [Suspect]
     Active Substance: LORLATINIB
     Indication: Non-small cell lung cancer metastatic
     Dosage: 100 MG, 1X/DAY
     Route: 048
     Dates: start: 202401
  2. LORLATINIB [Suspect]
     Active Substance: LORLATINIB
     Dosage: 50 MG, 1X/DAY
     Route: 048
  3. LORLATINIB [Suspect]
     Active Substance: LORLATINIB
     Route: 048

REACTIONS (3)
  - Myocardial ischaemia [Unknown]
  - Abdominal discomfort [Unknown]
  - Off label use [Unknown]
